FAERS Safety Report 18226801 (Version 1)
Quarter: 2020Q3

REPORT INFORMATION
  Report Type: Spontaneous
  Country: US (occurrence: US)
  Receive Date: 20200902
  Receipt Date: 20200902
  Transmission Date: 20201103
  Serious: Yes (Other)
  Sender: FDA-Public Use
  Company Number: None

PATIENT
  Age: 58 Year
  Sex: Female
  Weight: 53.52 kg

DRUGS (1)
  1. ERLOTINIB 150MG [Suspect]
     Active Substance: ERLOTINIB
     Indication: LUNG NEOPLASM MALIGNANT
     Route: 048

REACTIONS (3)
  - Growth of eyelashes [None]
  - Hair colour changes [None]
  - Hair texture abnormal [None]

NARRATIVE: CASE EVENT DATE: 20200902
